FAERS Safety Report 7712801-2 (Version None)
Quarter: 2011Q3

REPORT INFORMATION
  Report Type: 
  Country: None (occurrence: None)
  Receive Date: 20110826
  Receipt Date: 20110818
  Transmission Date: 20111222
  Serious: Yes (Other)
  Sender: FDA-Public Use
  Company Number: GB-GLAXOSMITHKLINE-B0739883A

PATIENT
  Age: 46 Year
  Sex: Female

DRUGS (2)
  1. PAROXETINE HCL [Suspect]
     Indication: PRODUCT USED FOR UNKNOWN INDICATION
     Route: 048
     Dates: start: 19990101, end: 20110503
  2. DIAZEPAM [Concomitant]

REACTIONS (9)
  - SELF-INJURIOUS IDEATION [None]
  - WITHDRAWAL SYNDROME [None]
  - SUICIDAL IDEATION [None]
  - EUPHORIC MOOD [None]
  - PSYCHOTIC DISORDER [None]
  - VOMITING [None]
  - PYREXIA [None]
  - MENTAL DISORDER [None]
  - MANIA [None]
